FAERS Safety Report 4853015-3 (Version None)
Quarter: 2005Q4

REPORT INFORMATION
  Report Type: 
  Country: None (occurrence: None)
  Receive Date: 20051212
  Receipt Date: 20051125
  Transmission Date: 20060501
  Serious: Yes (Other)
  Sender: FDA-Public Use
  Company Number: URSO-2005-043

PATIENT
  Age: 71 Year

DRUGS (1)
  1. URSODEXYCHOLIC ACID [Suspect]
     Dosage: 300 MG
     Dates: start: 20000201, end: 20040510

REACTIONS (1)
  - HAEMOLYTIC ANAEMIA [None]
